FAERS Safety Report 5828299-5 (Version None)
Quarter: 2008Q3

REPORT INFORMATION
  Report Type: 
  Country: None (occurrence: None)
  Receive Date: 20080731
  Receipt Date: 20080724
  Transmission Date: 20090109
  Serious: Yes (Other)
  Sender: FDA-Public Use
  Company Number: US-BAYER-US-2005-014937

PATIENT
  Age: 61 Year
  Sex: Female
  Weight: 63 kg

DRUGS (11)
  1. CLIMARA [Suspect]
     Indication: HORMONE REPLACEMENT THERAPY
     Route: 062
     Dates: start: 19950101, end: 20000101
  2. PROVERA [Suspect]
     Indication: HORMONE REPLACEMENT THERAPY
     Route: 048
     Dates: start: 19950101, end: 20000101
  3. ESTRADERM [Suspect]
     Indication: HORMONE REPLACEMENT THERAPY
     Dates: start: 19950101, end: 19960101
  4. SYNTHROID (NOS) [Concomitant]
     Indication: THYROIDECTOMY
     Route: 048
     Dates: start: 20000803
  5. SYNTHROID (NOS) [Concomitant]
     Dosage: UNIT DOSE: 0.088 MG
     Route: 048
     Dates: start: 20000907
  6. ROCALTROL (NOS) [Concomitant]
     Indication: THYROIDECTOMY
     Dosage: UNIT DOSE: 0.25 ?G
     Route: 048
     Dates: start: 20000907
  7. ZOCOR [Concomitant]
     Indication: BLOOD CHOLESTEROL INCREASED
     Dosage: UNIT DOSE: 10 MG
     Route: 048
     Dates: start: 20000803
  8. LORAZEPAM [Concomitant]
     Indication: DRUG USE FOR UNKNOWN INDICATION
     Route: 048
     Dates: start: 20000517
  9. FOSAMAX [Concomitant]
     Indication: DRUG USE FOR UNKNOWN INDICATION
     Dosage: UNIT DOSE: 5 MG
     Route: 048
     Dates: start: 20000907, end: 20001206
  10. LIPITOR [Concomitant]
     Indication: DRUG USE FOR UNKNOWN INDICATION
     Dosage: UNIT DOSE: 20 MG
     Route: 048
     Dates: start: 20000907
  11. NOLVADEX [Concomitant]
     Indication: BREAST CANCER FEMALE
     Dosage: UNIT DOSE: 10 MG
     Route: 048
     Dates: start: 20001212

REACTIONS (3)
  - BREAST CANCER FEMALE [None]
  - HYPOAESTHESIA [None]
  - SCAR [None]
